FAERS Safety Report 7650852-7 (Version None)
Quarter: 2011Q3

REPORT INFORMATION
  Report Type: 
  Country: None (occurrence: None)
  Receive Date: 20110727
  Receipt Date: 20110721
  Transmission Date: 20111222
  Serious: Yes (Hospitalization)
  Sender: FDA-Public Use
  Company Number: 2011SP034564

PATIENT
  Age: 72 Year
  Sex: Female

DRUGS (4)
  1. LOXAPINE [Suspect]
     Indication: MENTAL DISORDER
     Dosage: 40 DF, QD, PO
     Route: 048
     Dates: start: 20100901, end: 20100925
  2. MIRTAZAPINE [Suspect]
     Indication: PRODUCT USED FOR UNKNOWN INDICATION
     Dosage: 15, 30 MG, QD, PO
     Route: 048
     Dates: start: 20100921, end: 20100926
  3. ARICEPT [Concomitant]
  4. MEMANTINE HYDROCHLORIDE [Concomitant]

REACTIONS (11)
  - NEUROLEPTIC MALIGNANT SYNDROME [None]
  - ABNORMAL BEHAVIOUR [None]
  - POSTURE ABNORMAL [None]
  - BLOOD CREATINE PHOSPHOKINASE INCREASED [None]
  - PHAEOCHROMOCYTOMA [None]
  - AGITATION [None]
  - HYPERHIDROSIS [None]
  - PYREXIA [None]
  - BLOOD PRESSURE INCREASED [None]
  - SEROTONIN SYNDROME [None]
  - MUSCLE RIGIDITY [None]
